FAERS Safety Report 19507241 (Version 1)
Quarter: 2021Q3

REPORT INFORMATION
  Report Type: Spontaneous
  Country: US (occurrence: US)
  Receive Date: 20210708
  Receipt Date: 20210708
  Transmission Date: 20211014
  Serious: Yes (Hospitalization)
  Sender: FDA-Public Use
  Company Number: None

PATIENT
  Age: 62 Year
  Sex: Female
  Weight: 88.5 kg

DRUGS (2)
  1. CYCLOPHOSPHAMIDE. [Suspect]
     Active Substance: CYCLOPHOSPHAMIDE
     Dates: end: 20210618
  2. DOXORUBICIN HYDROCHLORIDE. [Suspect]
     Active Substance: DOXORUBICIN HYDROCHLORIDE
     Dates: end: 20210618

REACTIONS (9)
  - Flank pain [None]
  - Neuralgia [None]
  - Pain [None]
  - Back pain [None]
  - Decreased appetite [None]
  - Herpes zoster [None]
  - Dehydration [None]
  - Weight decreased [None]
  - Blood pressure decreased [None]

NARRATIVE: CASE EVENT DATE: 20210701
